FAERS Safety Report 7927909-6 (Version None)
Quarter: 2011Q4

REPORT INFORMATION
  Report Type: 
  Country: None (occurrence: None)
  Receive Date: 20111117
  Receipt Date: 20111117
  Transmission Date: 20120403
  Serious: No
  Sender: FDA-Public Use
  Company Number: None

PATIENT

DRUGS (1)
  1. ATELVIA [Suspect]

REACTIONS (8)
  - NECK PAIN [None]
  - HEADACHE [None]
  - ABDOMINAL DISCOMFORT [None]
  - FLATULENCE [None]
  - RENAL DISORDER [None]
  - HYPOPNOEA [None]
  - BACK PAIN [None]
  - RENAL PAIN [None]
